FAERS Safety Report 18605483 (Version 1)
Quarter: 2020Q4

REPORT INFORMATION
  Report Type: Spontaneous
  Country: US (occurrence: US)
  Receive Date: 20201211
  Receipt Date: 20201211
  Transmission Date: 20210114
  Serious: No
  Sender: FDA-Public Use
  Company Number: US-BAYER-2020-259133

PATIENT
  Sex: Female

DRUGS (2)
  1. VITRAKVI [Suspect]
     Active Substance: LAROTRECTINIB
     Dosage: 100 MG, BID
     Dates: end: 20201121
  2. VITRAKVI [Suspect]
     Active Substance: LAROTRECTINIB
     Dosage: 75 MG, BID
     Dates: start: 20201122

REACTIONS (1)
  - Incorrect dose administered [None]

NARRATIVE: CASE EVENT DATE: 20201124
